FAERS Safety Report 25878896 (Version 1)
Quarter: 2025Q4

REPORT INFORMATION
  Report Type: Spontaneous
  Country: US (occurrence: None)
  Receive Date: 20251003
  Receipt Date: 20251003
  Transmission Date: 20260118
  Serious: Yes (Hospitalization)
  Sender: FDA-CTU
  Company Number: None

PATIENT
  Sex: Female

DRUGS (1)
  1. TERIFLUNOMIDE [Suspect]
     Active Substance: TERIFLUNOMIDE
     Indication: Demyelination
     Dosage: FREQUENCY : DAILY;?
     Route: 048
     Dates: start: 20241219

REACTIONS (4)
  - Therapy interrupted [None]
  - Drug withdrawal headache [None]
  - Fall [None]
  - Ankle fracture [None]
